FAERS Safety Report 8176097-2 (Version None)
Quarter: 2012Q1

REPORT INFORMATION
  Report Type: 
  Country: None (occurrence: None)
  Receive Date: 20120228
  Receipt Date: 20120214
  Transmission Date: 20120608
  Serious: Yes (Hospitalization)
  Sender: FDA-Public Use
  Company Number: PNIS20120009

PATIENT
  Age: 52 Year
  Sex: Male

DRUGS (2)
  1. RITUXIMAB (RITUXIMAB) [Suspect]
     Indication: NON-HODGKIN'S LYMPHOMA
  2. PREDNISOLONE [Suspect]
     Indication: NON-HODGKIN'S LYMPHOMA

REACTIONS (2)
  - HEPATITIS B [None]
  - DISEASE RECURRENCE [None]
